FAERS Safety Report 8118161-X (Version None)
Quarter: 2012Q1

REPORT INFORMATION
  Report Type: 
  Country: None (occurrence: None)
  Receive Date: 20120131
  Receipt Date: 20120123
  Transmission Date: 20120608
  Serious: Yes (Death, Hospitalization)
  Sender: FDA-Public Use
  Company Number: 2012SP004154

PATIENT
  Age: 66 Year
  Sex: Male

DRUGS (1)
  1. POSACONAZOLE [Suspect]
     Indication: PROPHYLAXIS

REACTIONS (5)
  - LUNG INFILTRATION [None]
  - RESPIRATORY DISTRESS [None]
  - PNEUMONIA [None]
  - CARDIAC ARREST [None]
  - RESPIRATORY SYNCYTIAL VIRUS TEST POSITIVE [None]
